FAERS Safety Report 6083785-0 (Version None)
Quarter: 2009Q1

REPORT INFORMATION
  Report Type: 
  Country: None (occurrence: None)
  Receive Date: 20090219
  Receipt Date: 20090210
  Transmission Date: 20090719
  Serious: Yes (Other)
  Sender: FDA-Public Use
  Company Number: EG-PFIZER INC-2008158744

PATIENT

DRUGS (2)
  1. VFEND [Suspect]
     Indication: FEBRILE NEUTROPENIA
     Route: 048
  2. CHEMOTHERAPY NOS [Concomitant]
     Dosage: UNK

REACTIONS (1)
  - RESPIRATORY FAILURE [None]
